FAERS Safety Report 4320821-3 (Version None)
Quarter: 2004Q1

REPORT INFORMATION
  Report Type: 
  Country: None (occurrence: None)
  Receive Date: 20040315
  Receipt Date: 20030627
  Transmission Date: 20041129
  Serious: Yes (Other)
  Sender: FDA-Public Use
  Company Number: PHEH2003US05637

PATIENT
  Age: 55 Year
  Sex: Female

DRUGS (3)
  1. TRILEPTAL [Suspect]
     Dosage: 900 MG/DAY, ORAL
     Route: 048
     Dates: start: 20030404
  2. LAMICTAL [Concomitant]
  3. ZOLOFT [Concomitant]

REACTIONS (1)
  - HYPONATRAEMIA [None]
